FAERS Safety Report 18059338 (Version 1)
Quarter: 2020Q3

REPORT INFORMATION
  Report Type: Spontaneous
  Country: US (occurrence: US)
  Receive Date: 20200723
  Receipt Date: 20200723
  Transmission Date: 20201103
  Serious: No
  Sender: FDA-Public Use
  Company Number: US-ENDO PHARMACEUTICALS INC-2019-107047

PATIENT
  Age: 46 Year
  Sex: Male
  Weight: 95.24 kg

DRUGS (4)
  1. EDEX [Suspect]
     Active Substance: ALPROSTADIL
     Dosage: 20 MCG, AS DIRECTED
     Route: 017
  2. ADVIL (MEFENAMIC ACID) [Concomitant]
     Active Substance: MEFENAMIC ACID
     Indication: ARTHRALGIA
  3. EDEX [Suspect]
     Active Substance: ALPROSTADIL
     Indication: ERECTILE DYSFUNCTION
     Dosage: 40 MCG /1 ML, AS DIRECTED
     Route: 017
     Dates: start: 2018
  4. EDEX [Suspect]
     Active Substance: ALPROSTADIL
     Dosage: 10 MCG, AS DIRECTED
     Route: 017

REACTIONS (1)
  - Drug ineffective [Unknown]

NARRATIVE: CASE EVENT DATE: 20190730
